FAERS Safety Report 7668203 (Version 2)
Quarter: 2012Q4

REPORT INFORMATION
  Report Type: Report from Study
  Country: US (occurrence: US)
  Receive Date: 20101115
  Receipt Date: 20121026
  Transmission Date: 20130627
  Serious: Yes (Hospitalization)
  Sender: FDA-Public Use
  Company Number: US-ELI_LILLY_AND_COMPANY-US201011003423

PATIENT
  Age: 67 Year
  Sex: Male
  Weight: 72.56 kg

DRUGS (6)
  1. H7T-MC-TADN PH III TAXUS LIBERTE STENT S [Suspect]
     Indication: ACUTE CORONARY SYNDROME
     Dosage: 10 mg, daily (1/D)
  2. SIMVASTATIN [Concomitant]
     Indication: HYPERCHOLESTEROLAEMIA
     Dosage: 20 mg, daily (1/D)
     Route: 048
  3. CARAFATE [Concomitant]
     Indication: GASTROOESOPHAGEAL REFLUX DISEASE
     Dosage: 10 ml, as needed
     Route: 048
  4. ACIPHEX [Concomitant]
     Indication: GASTROOESOPHAGEAL REFLUX DISEASE
     Dosage: 20 mg, daily (1/D)
     Route: 048
     Dates: start: 20100722
  5. TOPROL XL [Concomitant]
     Indication: HYPERTENSION
     Dosage: 25 mg, daily (1/D)
     Route: 048
     Dates: start: 20100721
  6. ASPIRIN [Concomitant]
     Dosage: 325 mg, daily (1/D)

REACTIONS (1)
  - Chest pain [Recovered/Resolved]
